FAERS Safety Report 9475707 (Version 1)
Quarter: 2013Q3

REPORT INFORMATION
  Report Type: Spontaneous
  Country: US (occurrence: None)
  Receive Date: 20130821
  Receipt Date: 20130821
  Transmission Date: 20140515
  Serious: Yes (Other)
  Sender: FDA-Public Use
  Company Number: AUR-APL-2013-06860

PATIENT
  Sex: Female

DRUGS (6)
  1. IRBESARTAN [Suspect]
     Indication: PRODUCT USED FOR UNKNOWN INDICATION
  2. LIPITOR (ATORVASTATIN CALCIUM) [Concomitant]
  3. XALATAN (LATANOPROST) [Concomitant]
  4. CELEBREX (CELECOXIB) [Concomitant]
  5. ZOLOFT (SERTRALINE HYDROCHLORIDE) [Concomitant]
  6. DETROL LA (TOLTERODINE L -TARTRATE) [Concomitant]

REACTIONS (2)
  - Cough [None]
  - Hypoacusis [None]
